FAERS Safety Report 24577058 (Version 1)
Quarter: 2024Q4

REPORT INFORMATION
  Report Type: Spontaneous
  Country: PT (occurrence: PT)
  Receive Date: 20241104
  Receipt Date: 20241104
  Transmission Date: 20250115
  Serious: Yes (Hospitalization, Other)
  Sender: BAXTER
  Company Number: None

PATIENT
  Weight: 11 kg

DRUGS (1)
  1. PROPOFOL [Suspect]
     Active Substance: PROPOFOL
     Indication: Anaesthesia
     Dosage: FREQUENCY: ONCE TOTAL (DOSAGE TEXT: 10 MG SINGLE DOSE), DOSAGE FORM: EMULSION FOR INJECTION OR FOR I
     Route: 042
     Dates: start: 20240921

REACTIONS (3)
  - Blister [Recovering/Resolving]
  - Wound necrosis [Recovering/Resolving]
  - Seroma [Recovering/Resolving]

NARRATIVE: CASE EVENT DATE: 20240921
